FAERS Safety Report 10098764 (Version 6)
Quarter: 2014Q4

REPORT INFORMATION
  Report Type: Spontaneous
  Country: JP (occurrence: JP)
  Receive Date: 20140423
  Receipt Date: 20141009
  Transmission Date: 20150528
  Serious: Yes (Hospitalization)
  Sender: FDA-Public Use
  Company Number: PHHY2014JP048818

PATIENT
  Age: 73 Year
  Sex: Male
  Weight: 57 kg

DRUGS (8)
  1. OMEPRAZON [Concomitant]
     Active Substance: OMEPRAZOLE
     Indication: GASTRIC ULCER
     Dosage: 20 MG, UNK
     Route: 048
  2. ZOMETA [Suspect]
     Active Substance: ZOLEDRONIC ACID
     Indication: METASTASES TO BONE
     Dosage: 4 MG, PER ADMINISTRATION
     Route: 041
     Dates: start: 20120406, end: 20140123
  3. LIVALO [Concomitant]
     Active Substance: PITAVASTATIN CALCIUM
     Indication: HYPERLIPIDAEMIA
     Dosage: 1 MG, UNK
     Route: 048
  4. ZOLADEX [Concomitant]
     Active Substance: GOSERELIN ACETATE
     Indication: PROSTATE CANCER
     Dosage: UNK UKN, UNK
     Dates: start: 20121207
  5. MAGLAX [Concomitant]
     Active Substance: MAGNESIUM OXIDE
     Indication: CONSTIPATION
     Dosage: 990 MG, UNK
     Route: 048
  6. URINORM [Concomitant]
     Active Substance: BENZBROMARONE
     Indication: HYPERURICAEMIA
     Dosage: 25 MG, UNK
     Route: 048
     Dates: start: 20140213
  7. SLOW-K [Concomitant]
     Active Substance: POTASSIUM CHLORIDE
     Dosage: 3.6 G (1.2G PER ADMINISTRATION), DAILY
     Dates: start: 20140204
  8. ZETIA [Concomitant]
     Active Substance: EZETIMIBE
     Indication: HYPERLIPIDAEMIA
     Dosage: 10 MG, UNK
     Route: 048

REACTIONS (13)
  - Metabolic acidosis [Unknown]
  - Creatinine renal clearance abnormal [Unknown]
  - Fanconi syndrome [Recovered/Resolved]
  - Blood gases abnormal [Unknown]
  - Renal glycosuria [Unknown]
  - Decreased appetite [Unknown]
  - Renal tubular acidosis [Unknown]
  - Hypouricaemia [Unknown]
  - Hypophosphataemia [Unknown]
  - Aminoaciduria [Unknown]
  - Renal tubular disorder [Recovered/Resolved]
  - Hypokalaemia [Unknown]
  - Acute kidney injury [Recovered/Resolved]

NARRATIVE: CASE EVENT DATE: 20140203
